FAERS Safety Report 19211491 (Version 1)
Quarter: 2021Q2

REPORT INFORMATION
  Report Type: Spontaneous
  Country: US (occurrence: US)
  Receive Date: 20210503
  Receipt Date: 20210503
  Transmission Date: 20210717
  Serious: No
  Sender: FDA-Public Use
  Company Number: None

PATIENT
  Age: 59 Year
  Sex: Male
  Weight: 111 kg

DRUGS (1)
  1. DARATUMUMAB (DARATUMUMAB 20MG/ML INJ,SOLN) [Suspect]
     Active Substance: DARATUMUMAB
     Indication: PLASMA CELL MYELOMA
     Dates: start: 20210401

REACTIONS (4)
  - Dysphagia [None]
  - Dyspnoea [None]
  - Tachycardia [None]
  - Chest discomfort [None]

NARRATIVE: CASE EVENT DATE: 20210401
